FAERS Safety Report 4736138-9 (Version None)
Quarter: 2005Q3

REPORT INFORMATION
  Report Type: 
  Country: None (occurrence: None)
  Receive Date: 20050728
  Receipt Date: 20050422
  Transmission Date: 20060218
  Serious: Yes (Other)
  Sender: FDA-Public Use
  Company Number: 200511104US

PATIENT
  Age: 74 Year
  Sex: Male

DRUGS (2)
  1. TELITHROMYCIN (KETEK) TABLETS [Suspect]
     Indication: INFECTION
     Dosage: 800 MG QD PO
     Route: 048
     Dates: start: 20050209, end: 20050210
  2. DIAZEPAM [Concomitant]

REACTIONS (1)
  - ARRHYTHMIA [None]
